FAERS Safety Report 9743051 (Version 2)
Quarter: 2013Q4

REPORT INFORMATION
  Report Type: Spontaneous
  Country: JP (occurrence: JP)
  Receive Date: 20131210
  Receipt Date: 20131218
  Transmission Date: 20140711
  Serious: Yes (Hospitalization, Other)
  Sender: FDA-Public Use
  Company Number: JP-B.I. PHARMACEUTICALS,INC./RIDGEFIELD-2013-BI-41174GD

PATIENT
  Age: 68 Year
  Sex: Male
  Weight: 58.4 kg

DRUGS (4)
  1. PRADAXA [Suspect]
     Dosage: 220 MG
     Route: 065
  2. CILOSTAZOL [Suspect]
     Dosage: 100 MG
     Route: 065
  3. LAMIVUDINE/ABACAVIR SULFATE [Concomitant]
     Indication: HIV INFECTION
     Route: 065
     Dates: start: 200707
  4. ETRAVIRINE [Concomitant]
     Indication: HIV INFECTION
     Route: 065
     Dates: start: 200707

REACTIONS (3)
  - Cerebral infarction [Unknown]
  - Cerebellar infarction [Unknown]
  - Cerebral infarction [Unknown]
